FAERS Safety Report 17839836 (Version 1)
Quarter: 2020Q2

REPORT INFORMATION
  Report Type: Report from Study
  Country: None (occurrence: US)
  Receive Date: 20200529
  Receipt Date: 20200529
  Transmission Date: 20200714
  Serious: No
  Sender: FDA-Public Use
  Company Number: US-BIOVITRUM-2019US1637

PATIENT
  Age: 64 Year
  Sex: Male

DRUGS (5)
  1. METHADONE [Concomitant]
     Active Substance: METHADONE HYDROCHLORIDE
  2. HYDROMORPHONE [Concomitant]
     Active Substance: HYDROMORPHONE
  3. ATIVAN [Concomitant]
     Active Substance: LORAZEPAM
  4. WELLBUTRIN [Concomitant]
     Active Substance: BUPROPION HYDROCHLORIDE
  5. KINERET [Suspect]
     Active Substance: ANAKINRA
     Indication: METABOLIC DISORDER
     Route: 058
     Dates: start: 20181215

REACTIONS (2)
  - Off label use [Unknown]
  - Pain [Recovering/Resolving]

NARRATIVE: CASE EVENT DATE: 20181215
